FAERS Safety Report 14389831 (Version 2)
Quarter: 2018Q1

REPORT INFORMATION
  Report Type: Report from Study
  Country: DE (occurrence: DE)
  Receive Date: 20180115
  Receipt Date: 20180316
  Transmission Date: 20180509
  Serious: Yes (Hospitalization, Other)
  Sender: FDA-Public Use
  Company Number: PHHY2017DE159405

PATIENT
  Age: 61 Year
  Sex: Female
  Weight: 93 kg

DRUGS (1)
  1. ENTRESTO [Suspect]
     Active Substance: SACUBITRIL\VALSARTAN
     Indication: CARDIAC FAILURE
     Dosage: 1 DF (49/ 51 MG), BID
     Route: 065
     Dates: start: 20160331

REACTIONS (2)
  - Diarrhoea [Recovered/Resolved]
  - Blood potassium increased [Recovered/Resolved]

NARRATIVE: CASE EVENT DATE: 20170725
